FAERS Safety Report 6726073-9 (Version None)
Quarter: 2010Q2

REPORT INFORMATION
  Report Type: 
  Country: None (occurrence: None)
  Receive Date: 20100514
  Receipt Date: 20100505
  Transmission Date: 20101027
  Serious: Yes (Hospitalization)
  Sender: FDA-Public Use
  Company Number: US-AMGEN-KDC408217

PATIENT
  Sex: Male
  Weight: 105 kg

DRUGS (20)
  1. PANITUMUMAB [Suspect]
     Indication: COLORECTAL CANCER
     Route: 042
     Dates: start: 20100219
  2. IRINOTECAN [Suspect]
     Indication: COLORECTAL CANCER
     Route: 042
     Dates: start: 20100416
  3. ERLOTINIB HYDROCHLORIDE [Suspect]
     Indication: COLORECTAL CANCER
     Route: 048
     Dates: start: 20100219
  4. SIMVASTATIN [Concomitant]
  5. METOPROLOL SUCCINATE [Concomitant]
  6. ENALAPRIL MALEATE [Concomitant]
  7. NORVASC [Concomitant]
  8. FISH OIL [Concomitant]
  9. ACETYLSALICYLIC ACID [Concomitant]
  10. LORAZEPAM [Concomitant]
  11. COMPAZINE [Concomitant]
  12. MAGNESIUM OXIDE [Concomitant]
  13. DOXYCYCLINE [Concomitant]
  14. HYDROXYZINE [Concomitant]
  15. ZYRTEC [Concomitant]
  16. MUPIROCIN [Concomitant]
  17. ALCLOMETASONE DIPROPIONATE [Concomitant]
  18. MULTI-VITAMINS [Concomitant]
  19. METAMUCIL-2 [Concomitant]
  20. ZOFRAN [Concomitant]

REACTIONS (6)
  - DIARRHOEA [None]
  - DISEASE PROGRESSION [None]
  - FATIGUE [None]
  - HYPOMAGNESAEMIA [None]
  - NAUSEA [None]
  - NEUTROPENIA [None]
